FAERS Safety Report 6484361-8 (Version None)
Quarter: 2009Q4

REPORT INFORMATION
  Report Type: 
  Country: None (occurrence: None)
  Receive Date: 20091209
  Receipt Date: 20091201
  Transmission Date: 20100525
  Serious: Yes (Hospitalization, Other)
  Sender: FDA-Public Use
  Company Number: BR-ABBOTT-09P-020-0611842-00

PATIENT
  Sex: Female
  Weight: 43 kg

DRUGS (4)
  1. HUMIRA [Suspect]
     Indication: CROHN'S DISEASE
     Dosage: 160MG LOADING DOSE
     Route: 058
     Dates: start: 20080401
  2. HUMIRA [Suspect]
     Dosage: 80 MG LOADING DOSE
     Route: 058
  3. HUMIRA [Suspect]
     Route: 058
  4. AZATHIOPRINE [Concomitant]
     Indication: CROHN'S DISEASE
     Dosage: ONE PER DAY
     Route: 048
     Dates: start: 20091116

REACTIONS (9)
  - ANAEMIA [None]
  - ARTHRITIS [None]
  - DEHYDRATION [None]
  - DIARRHOEA [None]
  - DRUG INEFFECTIVE [None]
  - JOINT SWELLING [None]
  - MALNUTRITION [None]
  - PAIN [None]
  - WEIGHT DECREASED [None]
